FAERS Safety Report 17563463 (Version 2)
Quarter: 2020Q2

REPORT INFORMATION
  Report Type: Report from Study
  Country: None (occurrence: CA)
  Receive Date: 20200320
  Receipt Date: 20200406
  Transmission Date: 20200713
  Serious: Yes (Death)
  Sender: FDA-Public Use
  Company Number: CA-ABBVIE-20K-028-3329154-00

PATIENT
  Age: 68 Year
  Sex: Male
  Weight: 88.3 kg

DRUGS (6)
  1. AZACITIDINE. [Concomitant]
     Active Substance: AZACITIDINE
     Indication: MYELODYSPLASTIC SYNDROME
     Route: 058
     Dates: start: 20191008, end: 20200210
  2. AMINOPYRIDINE [Concomitant]
     Active Substance: DALFAMPRIDINE
     Indication: MULTIPLE SCLEROSIS
     Route: 048
     Dates: start: 20200301
  3. VENCLEXTA [Suspect]
     Active Substance: VENETOCLAX
     Indication: ACUTE MYELOID LEUKAEMIA
     Route: 048
     Dates: start: 20191014, end: 20200215
  4. METHYLPHENIDATE. [Concomitant]
     Active Substance: METHYLPHENIDATE
     Indication: MULTIPLE SCLEROSIS
     Route: 054
     Dates: start: 20200301
  5. AZACITIDINE. [Concomitant]
     Active Substance: AZACITIDINE
     Indication: ACUTE MYELOID LEUKAEMIA
  6. QUETIAPINE. [Concomitant]
     Active Substance: QUETIAPINE
     Indication: MULTIPLE SCLEROSIS
     Route: 048
     Dates: start: 20200301

REACTIONS (5)
  - Off label use [Unknown]
  - White blood cell count increased [Unknown]
  - Anaemia [Unknown]
  - Acute myeloid leukaemia [Fatal]
  - Blast cells [Unknown]

NARRATIVE: CASE EVENT DATE: 20200301
